FAERS Safety Report 6732778-6 (Version None)
Quarter: 2010Q2

REPORT INFORMATION
  Report Type: 
  Country: None (occurrence: None)
  Receive Date: 20100519
  Receipt Date: 20100510
  Transmission Date: 20101027
  Serious: Yes (Other)
  Sender: FDA-Public Use
  Company Number: US-AMGEN-QUU411415

PATIENT
  Sex: Female

DRUGS (8)
  1. ARANESP [Suspect]
     Indication: CHEMOTHERAPY
     Dates: start: 20100215
  2. NEULASTA [Suspect]
     Indication: CHEMOTHERAPY
     Dates: start: 20100430
  3. VP-16 [Concomitant]
  4. ONDANSETRON [Concomitant]
  5. MANNITOL [Concomitant]
  6. DIPHENHYDRAMINE HCL [Concomitant]
  7. DEXAMETASON [Concomitant]
  8. CISPLATIN [Concomitant]

REACTIONS (1)
  - INTERNATIONAL NORMALISED RATIO ABNORMAL [None]
